FAERS Safety Report 7460547-0 (Version None)
Quarter: 2011Q2

REPORT INFORMATION
  Report Type: 
  Country: None (occurrence: None)
  Receive Date: 20110505
  Receipt Date: 20110304
  Transmission Date: 20111010
  Serious: Yes (Life-Threatening, Hospitalization)
  Sender: FDA-Public Use
  Company Number: JP-AMGEN-JPNNI2010012898

PATIENT
  Age: 71 Year
  Sex: Male

DRUGS (25)
  1. CALTAN [Concomitant]
     Dosage: 0.5 A?G, QD
     Route: 048
  2. OXAROL [Concomitant]
     Dosage: 2250 MG, QD
     Dates: start: 20100219
  3. DOXAZOSIN MESYLATE [Concomitant]
     Dosage: 20 MG, QD
     Dates: end: 20091208
  4. DIGOSIN [Concomitant]
     Dosage: 2 MG, QD
     Route: 048
  5. ARGAMATE [Concomitant]
     Dosage: 10 MG, QD
     Route: 048
  6. DARBEPOETIN ALFA [Concomitant]
     Dosage: 28 IU, QD
     Route: 042
  7. ALFAROL [Concomitant]
     Dosage: UNK, QD
     Route: 048
     Dates: end: 20100302
  8. OLMETEC [Concomitant]
     Dosage: 2.125 MG, QD
     Route: 048
  9. RENAGEL [Concomitant]
     Dosage: 1500 MG, QD
     Route: 048
  10. DAIO-KANZO-TO [Concomitant]
     Dosage: 15 MG, QD
     Route: 048
  11. ALESION [Concomitant]
     Dosage: 5 A?G, Q3WK
     Route: 048
     Dates: end: 20091220
  12. ADALAT CC [Concomitant]
     Dosage: 40 MG, QD
     Route: 048
  13. CINACALCET HYDROCHLORIDE [Suspect]
     Indication: HYPERPARATHYROIDISM SECONDARY
     Dosage: 25 MG, QD
     Route: 048
     Dates: start: 20091120
  14. WARFARIN [Concomitant]
     Dosage: UNK UNK, QD
     Route: 048
  15. TAKEPRON [Concomitant]
     Dosage: 20 MG, QD
     Route: 048
  16. POLYFUL [Concomitant]
     Dosage: 60 MG, QD
     Route: 048
  17. DEPAS [Concomitant]
     Dosage: 1500 MG, QD
     Route: 048
  18. FLUNASE [Concomitant]
     Dosage: 0.25 MG, QD
  19. ARTIST [Concomitant]
     Dosage: 200 MG, QD
     Route: 048
  20. INSULIN [Concomitant]
     Dosage: UNK UNK, QD
     Route: 058
  21. FESIN [Concomitant]
     Dosage: UNK
     Route: 042
  22. ANPLAG [Concomitant]
     Dosage: 0.08 G, QD
     Route: 048
  23. PROCYLIN [Concomitant]
     Dosage: 40 MG, QD
     Route: 048
  24. PURSENNID [Concomitant]
     Dosage: 80 A?G, QD
     Route: 048
  25. SHAKUYAKUKANZOUTOU [Concomitant]
     Dosage: 7.5 G, QD
     Route: 048

REACTIONS (6)
  - DEVICE RELATED INFECTION [None]
  - BRADYARRHYTHMIA [None]
  - VENTRICULAR EXTRASYSTOLES [None]
  - ELECTROCARDIOGRAM QT PROLONGED [None]
  - BUNDLE BRANCH BLOCK RIGHT [None]
  - HYPERKALAEMIA [None]
